FAERS Safety Report 17751483 (Version 4)
Quarter: 2020Q2

REPORT INFORMATION
  Report Type: Spontaneous
  Country: PL (occurrence: PL)
  Receive Date: 20200506
  Receipt Date: 20200612
  Transmission Date: 20200714
  Serious: Yes (Life-Threatening, Hospitalization, Other)
  Sender: FDA-Public Use
  Company Number: PL-GLENMARK PHARMACEUTICALS-2020GMK047598

PATIENT
  Age: 51 Year
  Sex: Female
  Weight: 65 kg

DRUGS (16)
  1. PERAZINE [Suspect]
     Active Substance: PERAZINE
     Indication: ANTIDEPRESSANT THERAPY
     Dosage: 150 MILLIGRAM, QD
     Route: 065
  2. LAMOTRIGINE. [Suspect]
     Active Substance: LAMOTRIGINE
     Dosage: 50 MILLIGRAM, OD
     Route: 065
     Dates: start: 2017
  3. LAMOTRIGINE. [Suspect]
     Active Substance: LAMOTRIGINE
     Dosage: 200 MILLIGRAM, OD
     Route: 065
     Dates: start: 2017
  4. QUETIAPINE. [Suspect]
     Active Substance: QUETIAPINE
     Dosage: 400 MILLIGRAM, QD (UPTITRATE THE QUETIAPINE)
     Route: 065
     Dates: start: 2017
  5. FLUOXETINE [Suspect]
     Active Substance: FLUOXETINE HYDROCHLORIDE
     Indication: DEPRESSION
     Dosage: 60 MILLIGRAM, QD
     Route: 065
     Dates: start: 2008
  6. BIPERIDEN [Suspect]
     Active Substance: BIPERIDEN
     Indication: MUSCULOSKELETAL STIFFNESS
     Dosage: 4 MILLIGRAM, QD
     Route: 065
  7. VENLAFAXINE [Concomitant]
     Active Substance: VENLAFAXINE HYDROCHLORIDE
     Indication: DEPRESSION
     Dosage: UNK
     Route: 065
  8. LAMOTRIGINE. [Suspect]
     Active Substance: LAMOTRIGINE
     Indication: DEPRESSION
     Dosage: 25 MILLIGRAM, OD (THE DOSAGE WAS THEN INCREASED TO 50 MG/D FOR A WEEK, AND THEN INCREMENTALLY INCREA
     Route: 065
     Dates: start: 2017
  9. ARIPIPRAZOLE. [Suspect]
     Active Substance: ARIPIPRAZOLE
     Indication: DEPRESSION
     Dosage: 30 MILLIGRAM, QD
     Route: 065
     Dates: start: 2017
  10. ARIPIPRAZOLE. [Suspect]
     Active Substance: ARIPIPRAZOLE
     Indication: DELUSION
     Dosage: 7.5 MILLIGRAM, QD (WAS INITIATED AT A DOSE OF 7.5 MG/D IN ORDER TO REDUCE DELUSIONS AND WAS UPTITRAT
     Route: 065
     Dates: start: 2017
  11. QUETIAPINE. [Suspect]
     Active Substance: QUETIAPINE
     Indication: DEPRESSION
     Dosage: 50 MILLIGRAM, QD
     Route: 065
  12. LEVOTHYROXINE. [Concomitant]
     Active Substance: LEVOTHYROXINE
     Indication: HYPOTHYROIDISM
     Dosage: UNK
     Route: 065
     Dates: start: 2015, end: 2016
  13. GABAPENTIN. [Suspect]
     Active Substance: GABAPENTIN
     Indication: EXTRAPYRAMIDAL DISORDER
     Dosage: 800 MILLIGRAM, QD
     Route: 065
     Dates: start: 2015
  14. LITHIUM. [Suspect]
     Active Substance: LITHIUM
     Indication: DEPRESSION
     Dosage: MAXIMUM 1000 MG, QD
     Route: 065
  15. OLANZAPINE. [Suspect]
     Active Substance: OLANZAPINE
     Indication: PSYCHOTIC SYMPTOM
     Dosage: 5 MILLIGRAM, QD
     Route: 065
     Dates: start: 2015
  16. CARBAMAZEPINE. [Suspect]
     Active Substance: CARBAMAZEPINE
     Indication: DEPRESSION
     Dosage: 200 MILLIGRAM, QD (MAX. TO 800 MG/D)
     Route: 065

REACTIONS (10)
  - Anxiety [Unknown]
  - Neuroleptic malignant syndrome [Recovered/Resolved]
  - Product use in unapproved indication [Unknown]
  - Ideas of reference [Unknown]
  - Sleep disorder [Unknown]
  - Depressed mood [Unknown]
  - Persecutory delusion [Unknown]
  - Therapeutic response decreased [Unknown]
  - Condition aggravated [Unknown]
  - Mental impairment [Unknown]

NARRATIVE: CASE EVENT DATE: 2017
